FAERS Safety Report 5863982-7 (Version None)
Quarter: 2008Q3

REPORT INFORMATION
  Report Type: 
  Country: None (occurrence: None)
  Receive Date: 20080829
  Receipt Date: 20080826
  Transmission Date: 20090109
  Serious: Yes (Death, Life-Threatening, Hospitalization, Disabling, Other)
  Sender: FDA-Public Use
  Company Number: US-BAYER-US-2006-010534

PATIENT
  Age: 63 Year
  Sex: Male

DRUGS (21)
  1. CAMPATH [Suspect]
     Indication: CHRONIC LYMPHOCYTIC LEUKAEMIA
     Dosage: UNIT DOSE: 30 MG
     Route: 058
     Dates: start: 20060227, end: 20060227
  2. CAMPATH [Suspect]
     Dosage: UNIT DOSE: 30 MG
     Route: 058
     Dates: start: 20060123, end: 20060127
  3. CAMPATH [Suspect]
     Dosage: UNIT DOSE: 30 MG
     Route: 058
     Dates: start: 20060327, end: 20060331
  4. CAMPATH [Suspect]
     Dosage: UNIT DOSE: 30 MG
     Route: 058
     Dates: start: 20060221, end: 20060224
  5. FLUDARA [Suspect]
     Indication: CHRONIC LYMPHOCYTIC LEUKAEMIA
     Route: 042
     Dates: start: 20060123, end: 20060127
  6. FLUDARA [Suspect]
     Route: 042
     Dates: start: 20060221, end: 20060224
  7. FLUDARA [Suspect]
     Route: 042
     Dates: start: 20060227, end: 20060227
  8. FLUDARA [Suspect]
     Route: 042
     Dates: start: 20060327, end: 20060331
  9. SEPTRA DS [Concomitant]
     Indication: PROPHYLAXIS
     Route: 048
     Dates: start: 20060123
  10. FAMVIR [Concomitant]
     Indication: PROPHYLAXIS
     Dosage: UNIT DOSE: 250 MG
     Route: 048
     Dates: start: 20060123
  11. NEUPOGEN [Concomitant]
     Indication: NEUTROPENIA
     Dosage: UNIT DOSE: 480 MG
     Route: 058
     Dates: start: 20060130
  12. MOTRIN [Concomitant]
     Indication: BONE PAIN
     Dosage: UNIT DOSE: 300 MG
     Route: 048
     Dates: start: 20060219
  13. PROCRIT [Concomitant]
     Indication: ANAEMIA
     Route: 058
     Dates: start: 20060213
  14. KYTRIL [Concomitant]
     Indication: PROPHYLAXIS OF NAUSEA AND VOMITING
     Dosage: UNIT DOSE: 1 MG
     Route: 042
     Dates: start: 20060123
  15. BENADRYL [Concomitant]
     Indication: PREMEDICATION
     Dosage: UNIT DOSE: 25 MG
     Route: 042
     Dates: start: 20060123
  16. TYLENOL (CAPLET) [Concomitant]
     Indication: PREMEDICATION
     Dosage: UNIT DOSE: 650 MG
     Route: 048
     Dates: start: 20060123
  17. LIPITOR [Concomitant]
     Indication: HYPERCHOLESTEROLAEMIA
     Dosage: UNIT DOSE: 20 MG
     Route: 048
     Dates: start: 20050601, end: 20060221
  18. ALLOPURINOL [Concomitant]
     Indication: PROPHYLAXIS
     Dosage: UNIT DOSE: 300 MG
     Route: 048
     Dates: start: 20060122, end: 20060221
  19. LEVAQUIN [Concomitant]
     Indication: ANTIBIOTIC PROPHYLAXIS
     Dosage: UNIT DOSE: 500 MG
     Route: 048
     Dates: start: 20060130, end: 20060205
  20. LEVAQUIN [Concomitant]
     Indication: PYREXIA
     Dosage: UNIT DOSE: 500 MG
     Route: 048
     Dates: start: 20060331, end: 20060406
  21. DECADRON SRC [Concomitant]
     Indication: PREMEDICATION
     Dosage: UNIT DOSE: 10 MG
     Route: 042
     Dates: start: 20060123, end: 20060227

REACTIONS (5)
  - ASTHENIA [None]
  - MYELITIS [None]
  - NEUROPATHY PERIPHERAL [None]
  - NEUROTOXICITY [None]
  - URINARY INCONTINENCE [None]
